FAERS Safety Report 19327977 (Version 3)
Quarter: 2021Q2

REPORT INFORMATION
  Report Type: Report from Study
  Country: US (occurrence: US)
  Receive Date: 20210528
  Receipt Date: 20210618
  Transmission Date: 20210717
  Serious: Yes (Hospitalization)
  Sender: FDA-Public Use
  Company Number: US-EISAI MEDICAL RESEARCH-EC-2021-093485

PATIENT
  Age: 7 Year
  Sex: Female
  Weight: 20.3 kg

DRUGS (3)
  1. LENVATINIB [Suspect]
     Active Substance: LENVATINIB
     Indication: EMBRYONAL RHABDOMYOSARCOMA
     Route: 048
     Dates: start: 20210427, end: 20210522
  2. MIRALAX [Concomitant]
     Active Substance: POLYETHYLENE GLYCOL 3350
     Indication: CONSTIPATION
  3. EVEROLIMUS. [Suspect]
     Active Substance: EVEROLIMUS
     Indication: EMBRYONAL RHABDOMYOSARCOMA
     Route: 048
     Dates: start: 20210427, end: 20210522

REACTIONS (2)
  - Pancreatitis [Recovering/Resolving]
  - Pyrexia [Not Recovered/Not Resolved]

NARRATIVE: CASE EVENT DATE: 20210525
